FAERS Safety Report 22125745 (Version 1)
Quarter: 2023Q1

REPORT INFORMATION
  Report Type: Spontaneous
  Country: US (occurrence: US)
  Receive Date: 20230322
  Receipt Date: 20230322
  Transmission Date: 20230418
  Serious: No
  Sender: FDA-Public Use
  Company Number: US-PFIZER INC-PV202300053253

PATIENT
  Sex: Female

DRUGS (1)
  1. ZARONTIN [Suspect]
     Active Substance: ETHOSUXIMIDE
     Indication: Seizure
     Dosage: UNK

REACTIONS (1)
  - Product supply issue [Unknown]
